FAERS Safety Report 19069025 (Version 1)
Quarter: 2021Q1

REPORT INFORMATION
  Report Type: Spontaneous
  Country: US (occurrence: US)
  Receive Date: 20210329
  Receipt Date: 20210329
  Transmission Date: 20210420
  Serious: Yes (Hospitalization)
  Sender: FDA-Public Use
  Company Number: None

PATIENT
  Age: 72 Year
  Sex: Female

DRUGS (6)
  1. REPATHA [Suspect]
     Active Substance: EVOLOCUMAB
     Indication: PRODUCT USED FOR UNKNOWN INDICATION
     Dosage: ?          OTHER FREQUENCY:EVERY TWO WEEKS;?
     Route: 058
     Dates: start: 20201117
  2. METOPROLOL SUCCIONATE [Concomitant]
  3. ISOSORBIDE MONONITRATE. [Concomitant]
     Active Substance: ISOSORBIDE MONONITRATE
  4. CLOPIDOGREL [Concomitant]
     Active Substance: CLOPIDOGREL BISULFATE
  5. EZETIMIBE. [Concomitant]
     Active Substance: EZETIMIBE
  6. MODERNA COVID?19 VACCINE [Suspect]
     Active Substance: CX-024414

REACTIONS (3)
  - Facial paralysis [None]
  - Periorbital swelling [None]
  - Therapy interrupted [None]

NARRATIVE: CASE EVENT DATE: 20210321
